FAERS Safety Report 14389743 (Version 4)
Quarter: 2018Q2

REPORT INFORMATION
  Report Type: Report from Study
  Country: BR (occurrence: BR)
  Receive Date: 20180115
  Receipt Date: 20180420
  Transmission Date: 20180711
  Serious: Yes (Other)
  Sender: FDA-Public Use
  Company Number: BR-EMD SERONO-E2B_90002185

PATIENT
  Sex: Female

DRUGS (4)
  1. REBIF [Suspect]
     Active Substance: INTERFERON BETA-1A
     Indication: MULTIPLE SCLEROSIS
     Route: 058
     Dates: start: 20121204
  2. DIAZEPAM. [Concomitant]
     Active Substance: DIAZEPAM
     Indication: MUSCLE SPASMS
  3. RIVOTRIL [Concomitant]
     Active Substance: CLONAZEPAM
     Indication: PAIN IN EXTREMITY
  4. LYRICA [Concomitant]
     Active Substance: PREGABALIN
     Indication: NERVOUSNESS

REACTIONS (15)
  - Hepatic enzyme abnormal [Recovered/Resolved]
  - Disease progression [Unknown]
  - Respiratory disorder [Unknown]
  - Dyspnoea [Unknown]
  - Burning sensation [Unknown]
  - Neck pain [Unknown]
  - Hypothermia [Recovering/Resolving]
  - Joint lock [Unknown]
  - Unevaluable event [Unknown]
  - Headache [Not Recovered/Not Resolved]
  - Malaise [Not Recovered/Not Resolved]
  - Intervertebral disc disorder [Unknown]
  - Vitamin D deficiency [Unknown]
  - Fatigue [Unknown]
  - Nervousness [Unknown]

NARRATIVE: CASE EVENT DATE: 2016
